FAERS Safety Report 10009830 (Version 2)
Quarter: 2014Q1

REPORT INFORMATION
  Report Type: Spontaneous
  Country: US (occurrence: US)
  Receive Date: 20140312
  Receipt Date: 20140312
  Transmission Date: 20141002
  Serious: No
  Sender: FDA-Public Use
  Company Number: US-INCYTE CORPORATION-2013IN000259

PATIENT
  Age: 66 Year
  Sex: Female

DRUGS (10)
  1. JAKAFI [Suspect]
     Indication: MYELOFIBROSIS
     Dosage: 15 MG, BID
     Route: 048
     Dates: start: 20130114
  2. ATENOLOL [Concomitant]
  3. AMLODIPINE [Concomitant]
  4. POTASSIUM CHLORIDE [Concomitant]
  5. LOSARTAN [Concomitant]
  6. HYDROCHLOROTHIAZIDE [Concomitant]
  7. LEVOTHYROXINE [Concomitant]
  8. VITAMIN D [Concomitant]
     Dosage: 325 MG, UNK
  9. ASPIRIN [Concomitant]
  10. HYDREA [Concomitant]

REACTIONS (3)
  - Flatulence [Unknown]
  - Abdominal pain upper [Unknown]
  - Anaemia [Unknown]
